FAERS Safety Report 4822395-7 (Version None)
Quarter: 2005Q4

REPORT INFORMATION
  Report Type: 
  Country: None (occurrence: None)
  Receive Date: 20051104
  Receipt Date: 20051104
  Transmission Date: 20060501
  Serious: Yes (Life-Threatening)
  Sender: FDA-Public Use
  Company Number: None

PATIENT
  Age: 73 Year
  Sex: Female
  Weight: 67.8 kg

DRUGS (2)
  1. TELITHROMYCIN    400 MG    AVENTIS [Suspect]
     Indication: SINUSITIS
     Dosage: TELITHROMYCIN   400 MG  2X DAILY   PO
     Route: 048
     Dates: start: 20050719, end: 20051013
  2. NIACINAMIDE    500 MG     RUGBY [Suspect]
     Indication: SKIN DISORDER
     Dosage: NIACINAMIDE   1000 MG  2X DAILY  PO
     Route: 048
     Dates: start: 20050613, end: 20051017

REACTIONS (4)
  - BLOOD PRESSURE SYSTOLIC INCREASED [None]
  - CONFUSIONAL STATE [None]
  - DEPRESSED LEVEL OF CONSCIOUSNESS [None]
  - HEPATIC FAILURE [None]
